FAERS Safety Report 5321295-6 (Version None)
Quarter: 2007Q2

REPORT INFORMATION
  Report Type: 
  Country: None (occurrence: None)
  Receive Date: 20070507
  Receipt Date: 20070507
  Transmission Date: 20071010
  Serious: Yes (Life-Threatening)
  Sender: FDA-Public Use
  Company Number: None

PATIENT
  Sex: Female

DRUGS (1)
  1. LAMICTAL [Suspect]
     Indication: BIPOLAR DISORDER
     Dosage: 25MG  EVERY MORNING  OROPHARINGEL
     Route: 049
     Dates: start: 20070323, end: 20070407

REACTIONS (2)
  - RASH GENERALISED [None]
  - RASH VESICULAR [None]
